FAERS Safety Report 4950072-0 (Version None)
Quarter: 2006Q1

REPORT INFORMATION
  Report Type: 
  Country: None (occurrence: None)
  Receive Date: 20060320
  Receipt Date: 20060320
  Transmission Date: 20060701
  Serious: Yes (Hospitalization)
  Sender: FDA-Public Use
  Company Number: None

PATIENT
  Age: 78 Year
  Sex: Female
  Weight: 58.514 kg

DRUGS (3)
  1. BONIVA [Suspect]
     Indication: OSTEOPOROSIS
     Dosage: 150 MG X 1 DOSE ORAL
     Route: 048
     Dates: start: 20060217
  2. ATENOLOL [Concomitant]
  3. DARVOCET [Concomitant]

REACTIONS (5)
  - CHEST PAIN [None]
  - DEMENTIA [None]
  - DIABETES MELLITUS NON-INSULIN-DEPENDENT [None]
  - GASTROOESOPHAGEAL REFLUX DISEASE [None]
  - PANCREATITIS ACUTE [None]
